FAERS Safety Report 6660431-6 (Version None)
Quarter: 2010Q1

REPORT INFORMATION
  Report Type: 
  Country: None (occurrence: None)
  Receive Date: 20100331
  Receipt Date: 20100318
  Transmission Date: 20100710
  Serious: Yes (Hospitalization)
  Sender: FDA-Public Use
  Company Number: NL-ELI_LILLY_AND_COMPANY-NL201002006099

PATIENT
  Sex: Male
  Weight: 84.3 kg

DRUGS (8)
  1. PEMETREXED [Suspect]
     Indication: NON-SMALL CELL LUNG CANCER
     Dosage: 500 MG/M2, ON DAY 1 EVERY 21 DAYS
     Route: 042
     Dates: start: 20100218
  2. CETUXIMAB [Suspect]
     Indication: NON-SMALL CELL LUNG CANCER
     Dosage: 400 MG/M2, ON DAY 1 CYCLE 1 ONLY
     Route: 042
     Dates: start: 20100218, end: 20100218
  3. CETUXIMAB [Suspect]
     Dosage: 250 MG/M2, WEEKLY (1/W)
     Route: 042
  4. CISPLATIN [Suspect]
     Indication: NON-SMALL CELL LUNG CANCER
     Dosage: 75 MG/M2, ON DAY 1 EVERY 21 DAYS
     Route: 042
     Dates: start: 20100218
  5. FOLIC ACID [Concomitant]
     Indication: PROPHYLAXIS
  6. VITAMIN B-12 [Concomitant]
     Indication: PROPHYLAXIS
  7. DEXAMETHASONE [Concomitant]
     Indication: PROPHYLAXIS
  8. ANTIHISTAMINES [Concomitant]
     Indication: PROPHYLAXIS
     Dosage: UNK, UNK

REACTIONS (1)
  - CONVULSION [None]
